FAERS Safety Report 8626020-9 (Version None)
Quarter: 2012Q3

REPORT INFORMATION
  Report Type: 
  Country: None (occurrence: None)
  Receive Date: 20120827
  Receipt Date: 20120823
  Transmission Date: 20120928
  Serious: Yes (Other)
  Sender: FDA-Public Use
  Company Number: BR-ROCHE-1107686

PATIENT
  Age: 53 Year
  Sex: Male

DRUGS (1)
  1. MABTHERA [Suspect]
     Indication: B-CELL LYMPHOMA
     Dates: end: 20120101

REACTIONS (5)
  - WEIGHT DECREASED [None]
  - DISSEMINATED TUBERCULOSIS [None]
  - HYPERHIDROSIS [None]
  - THROMBOCYTOPENIA [None]
  - LYMPHADENOPATHY [None]
